FAERS Safety Report 5419396-7 (Version None)
Quarter: 2007Q3

REPORT INFORMATION
  Report Type: 
  Country: None (occurrence: None)
  Receive Date: 20070820
  Receipt Date: 20070816
  Transmission Date: 20080115
  Serious: Yes (Hospitalization)
  Sender: FDA-Public Use
  Company Number: A0640824A

PATIENT
  Age: 53 Year
  Sex: Female
  Weight: 61 kg

DRUGS (3)
  1. LAPATINIB [Suspect]
     Dosage: 1500MG PER DAY
     Route: 048
     Dates: start: 20070109
  2. CISPLATIN [Suspect]
     Dosage: 100MGM2 CYCLIC
     Route: 042
     Dates: start: 20070116
  3. RADIOTHERAPY [Concomitant]
     Dosage: 2GY PER DAY
     Route: 061
     Dates: start: 20070111

REACTIONS (5)
  - BRONCHITIS [None]
  - DYSPHAGIA [None]
  - FATIGUE [None]
  - MUCOSAL INFLAMMATION [None]
  - PAIN [None]
